APPROVED DRUG PRODUCT: DEXRAZOXANE HYDROCHLORIDE
Active Ingredient: DEXRAZOXANE HYDROCHLORIDE
Strength: EQ 250MG BASE/VIAL
Dosage Form/Route: INJECTABLE;INJECTION
Application: A207321 | Product #002 | TE Code: AP
Applicant: GLAND PHARMA LTD
Approved: Dec 16, 2019 | RLD: No | RS: No | Type: RX